FAERS Safety Report 5361602-1 (Version None)
Quarter: 2007Q2

REPORT INFORMATION
  Report Type: 
  Country: None (occurrence: None)
  Receive Date: 20070619
  Receipt Date: 20070612
  Transmission Date: 20071010
  Serious: Yes (Hospitalization)
  Sender: FDA-Public Use
  Company Number: GBWYE747729MAY07

PATIENT
  Sex: Male

DRUGS (4)
  1. TYGACIL [Suspect]
     Indication: PROSTATITIS
     Route: 042
     Dates: start: 20070517
  2. CYCLIZINE [Concomitant]
     Indication: NAUSEA
     Dosage: 50MG, THREE TIMES DAILY, PRN
     Route: 048
  3. MEROPENEM [Concomitant]
     Dates: start: 20061228, end: 20070202
  4. PARACETAMOL [Concomitant]
     Indication: HEADACHE
     Dosage: 1 G EVERY 1 PRN
     Route: 048

REACTIONS (5)
  - CONDITION AGGRAVATED [None]
  - FATIGUE [None]
  - HEADACHE [None]
  - LETHARGY [None]
  - NAUSEA [None]
